FAERS Safety Report 5828167-9 (Version None)
Quarter: 2008Q3

REPORT INFORMATION
  Report Type: 
  Country: None (occurrence: None)
  Receive Date: 20080729
  Receipt Date: 20080717
  Transmission Date: 20090109
  Serious: Yes (Death, Hospitalization)
  Sender: FDA-Public Use
  Company Number: 1000000235

PATIENT
  Age: 79 Year
  Sex: Male

DRUGS (4)
  1. MEMANTINE HCL [Suspect]
     Indication: DEMENTIA ALZHEIMER'S TYPE
     Dates: start: 20040201
  2. EXELON [Suspect]
     Dates: start: 20000201
  3. EXELON [Suspect]
     Dates: start: 20010101
  4. EXELON [Suspect]
     Dates: start: 20010201

REACTIONS (2)
  - DYSTONIA [None]
  - PLEUROTHOTONUS [None]
